FAERS Safety Report 8384508 (Version 5)
Quarter: 2013Q2

REPORT INFORMATION
  Report Type: Spontaneous
  Country: JP (occurrence: JP)
  Receive Date: 20120202
  Receipt Date: 20130423
  Transmission Date: 20140414
  Serious: Yes (Hospitalization)
  Sender: FDA-Public Use
  Company Number: JP-SANOFI-AVENTIS-2012SA006195

PATIENT
  Sex: Male

DRUGS (10)
  1. LANTUS [Suspect]
     Indication: TYPE 2 DIABETES MELLITUS
     Dosage: DOSE:3 UNIT(S)
     Route: 065
  2. LANTUS [Suspect]
     Indication: TYPE 2 DIABETES MELLITUS
     Dosage: REDUCED DOSE
     Route: 065
  3. INSULIN HUMAN REGULAR [Suspect]
     Indication: TYPE 2 DIABETES MELLITUS
     Dosage: DOSE: 21-9-13  UNITS
  4. NOVORAPID [Suspect]
     Indication: TYPE 2 DIABETES MELLITUS
     Dosage: 23, 15 AND 20 UNITS BEFORE BREAKFAST, LUNCH AND DINNER, RESPECTIVELY
     Route: 065
  5. NOVORAPID [Suspect]
     Indication: TYPE 2 DIABETES MELLITUS
     Dosage: REDUCED DOSE
     Route: 065
  6. NOVOLIN N [Suspect]
     Indication: TYPE 2 DIABETES MELLITUS
     Dosage: DOSE: 0-0-0-3  UNITS
  7. DECADRON [Concomitant]
     Indication: PROSTATE CANCER
     Dosage: AT THE AGE OF 88 YEARS
     Route: 048
  8. GLIBENCLAMIDE [Concomitant]
     Indication: TYPE 2 DIABETES MELLITUS
     Route: 048
  9. LEUPRORELIN [Concomitant]
     Indication: PROSTATE CANCER
  10. CHLORMADINONE ACETATE [Concomitant]
     Indication: PROSTATE CANCER

REACTIONS (3)
  - Cutaneous amyloidosis [Not Recovered/Not Resolved]
  - Injection site mass [Not Recovered/Not Resolved]
  - Blood glucose fluctuation [Recovered/Resolved]
